FAERS Safety Report 4810502-1 (Version None)
Quarter: 2005Q4

REPORT INFORMATION
  Report Type: 
  Country: None (occurrence: None)
  Receive Date: 20051025
  Receipt Date: 20051025
  Transmission Date: 20060501
  Serious: Yes (Hospitalization)
  Sender: FDA-Public Use
  Company Number: None

PATIENT
  Age: 68 Year
  Sex: Male

DRUGS (9)
  1. DIGOXIN [Suspect]
     Dosage: 0.125MG PO QD
     Route: 048
     Dates: start: 20050623, end: 20050820
  2. NADOLOL [Suspect]
     Dosage: 20MG PO QD
     Route: 048
     Dates: start: 20050415, end: 20050820
  3. ALBUTEROL [Concomitant]
  4. ALBUTEROL SULFATE AND IPRATROPIUM BROMIDE [Concomitant]
  5. LANOXIN [Concomitant]
  6. FELODIPINE [Concomitant]
  7. HYDROCHLOROTHIAZIDE [Concomitant]
  8. NADOLOL [Concomitant]
  9. SPIRONOLACTONE [Concomitant]

REACTIONS (6)
  - ANAEMIA [None]
  - BRADYCARDIA [None]
  - DYSPNOEA [None]
  - RENAL FAILURE ACUTE [None]
  - RESPIRATORY FAILURE [None]
  - THERAPEUTIC AGENT TOXICITY [None]
